FAERS Safety Report 4882206-0 (Version None)
Quarter: 2006Q1

REPORT INFORMATION
  Report Type: 
  Country: None (occurrence: None)
  Receive Date: 20060117
  Receipt Date: 20050816
  Transmission Date: 20060701
  Serious: Yes (Other)
  Sender: FDA-Public Use
  Company Number: US-MERCK-0508USA03076

PATIENT
  Age: 72 Year
  Sex: Female
  Weight: 63 kg

DRUGS (6)
  1. VIOXX [Suspect]
     Indication: ARTHRALGIA
     Route: 048
     Dates: start: 19991018, end: 20001009
  2. ATENOLOL [Concomitant]
     Route: 065
  3. HYDROCHLOROTHIAZIDE AND TRIAMTERENE [Concomitant]
     Route: 065
  4. PRINIVIL [Concomitant]
     Route: 065
  5. LIPITOR [Concomitant]
     Route: 065
  6. PREMPRO [Concomitant]
     Route: 065

REACTIONS (3)
  - ARTHROPATHY [None]
  - BLINDNESS [None]
  - CEREBROVASCULAR ACCIDENT [None]
